FAERS Safety Report 7560514-2 (Version None)
Quarter: 2011Q2

REPORT INFORMATION
  Report Type: 
  Country: None (occurrence: None)
  Receive Date: 20110621
  Receipt Date: 20110610
  Transmission Date: 20111010
  Serious: Yes (Other)
  Sender: FDA-Public Use
  Company Number: JP-MERCK-1106USA01839

PATIENT
  Age: 50 Year
  Sex: Male

DRUGS (7)
  1. JANUVIA [Suspect]
     Indication: TYPE 2 DIABETES MELLITUS
     Route: 048
     Dates: start: 20101101
  2. ASPIRIN [Concomitant]
     Route: 065
     Dates: start: 20110201
  3. RABEPRAZOLE SODIUM [Concomitant]
     Route: 065
     Dates: start: 20110201
  4. VASOTEC [Concomitant]
     Route: 048
     Dates: start: 20110201
  5. TRICOR [Concomitant]
     Route: 065
     Dates: start: 20110201
  6. CRESTOR [Concomitant]
     Route: 065
     Dates: start: 20110201
  7. PLAVIX [Concomitant]
     Route: 065
     Dates: start: 20110201

REACTIONS (1)
  - INTERSTITIAL LUNG DISEASE [None]
